FAERS Safety Report 4763147-6 (Version None)
Quarter: 2005Q3

REPORT INFORMATION
  Report Type: 
  Country: None (occurrence: None)
  Receive Date: 20050826
  Receipt Date: 20041022
  Transmission Date: 20060218
  Serious: Yes (Death, Other)
  Sender: FDA-Public Use
  Company Number: USA-2004-0016502

PATIENT
  Age: 20 Year
  Sex: Male
  Weight: 69.8 kg

DRUGS (4)
  1. OXYCODONE HCL [Suspect]
  2. XANAX [Concomitant]
  3. COCAINE (COCAINE) [Concomitant]
  4. DILANTIN [Concomitant]

REACTIONS (3)
  - ACCIDENTAL OVERDOSE [None]
  - DRUG ABUSER [None]
  - MULTIPLE DRUG OVERDOSE [None]
